FAERS Safety Report 21785189 (Version 1)
Quarter: 2022Q4

REPORT INFORMATION
  Report Type: Spontaneous
  Country: US (occurrence: None)
  Receive Date: 20221227
  Receipt Date: 20221227
  Transmission Date: 20230112
  Serious: Yes (Other)
  Sender: FDA-Public Use
  Company Number: None

PATIENT
  Age: 38 Year
  Sex: Male
  Weight: 121.2 kg

DRUGS (10)
  1. CABENUVA [Suspect]
     Active Substance: CABOTEGRAVIR\RILPIVIRINE
     Indication: HIV infection
     Dosage: OTHER FREQUENCY : INJECT EVERY 2 MON;?
     Route: 030
     Dates: start: 20220513, end: 20221226
  2. TYLENOL WITH CODEINE [Concomitant]
     Active Substance: ACETAMINOPHEN\CODEINE PHOSPHATE
     Dates: start: 20220627
  3. AMLODIPINE [Concomitant]
     Active Substance: AMLODIPINE BESYLATE
     Dates: start: 20201116
  4. BACLOFEN [Concomitant]
     Active Substance: BACLOFEN
     Dates: start: 20221011
  5. BETAMETHASONE\CLOTRIMAZOLE [Concomitant]
     Active Substance: BETAMETHASONE\CLOTRIMAZOLE
     Dates: start: 20220912
  6. Hydrocholorthiazide 25mg [Concomitant]
     Dates: start: 20201116
  7. Norco 5/235 [Concomitant]
     Dates: start: 20220706
  8. IBUPROFEN [Concomitant]
     Active Substance: IBUPROFEN
     Dates: start: 20220824
  9. LYRICA [Concomitant]
     Active Substance: PREGABALIN
     Dates: start: 20220211
  10. VITAMIN D [Concomitant]
     Active Substance: VITAMIN D NOS
     Dates: start: 20221017

REACTIONS (2)
  - Treatment failure [None]
  - Condition aggravated [None]

NARRATIVE: CASE EVENT DATE: 20221226
